FAERS Safety Report 23308245 (Version 1)
Quarter: 2023Q4

REPORT INFORMATION
  Report Type: Spontaneous
  Country: US (occurrence: US)
  Receive Date: 20231218
  Receipt Date: 20231218
  Transmission Date: 20240110
  Serious: Yes (Other)
  Sender: FDA-Public Use
  Company Number: US-APIL-2311200US

PATIENT
  Sex: Female
  Weight: 88 kg

DRUGS (3)
  1. LILETTA [Suspect]
     Active Substance: LEVONORGESTREL
     Indication: Contraception
     Dosage: TIME INTERVAL: AS NECESSARY: DURATION: 1 MONTH 7 DAYS; FORM STRENGTH: 52 MILLIGRAM
     Route: 015
     Dates: start: 20230214, end: 20230322
  2. LILETTA [Suspect]
     Active Substance: LEVONORGESTREL
     Indication: Menstruation irregular
     Dosage: TIME INTERVAL: AS NECESSARY: FORM STRENGTH: 52 MILLIGRAM
     Route: 015
     Dates: start: 20230125, end: 20230214
  3. FERROUS SULFATE [Concomitant]
     Active Substance: FERROUS SULFATE
     Indication: Product used for unknown indication
     Route: 048
     Dates: start: 20230116

REACTIONS (9)
  - Uterine haemorrhage [Recovered/Resolved]
  - Impaired quality of life [Recovered/Resolved]
  - Product use in unapproved indication [Unknown]
  - Device expulsion [Recovering/Resolving]
  - Endometritis [Recovered/Resolved]
  - Uterine spasm [Unknown]
  - Uterine tenderness [Unknown]
  - Uterine pain [Unknown]
  - Uterine haemorrhage [Unknown]

NARRATIVE: CASE EVENT DATE: 20230101
